FAERS Safety Report 9569454 (Version 2)
Quarter: 2013Q3

REPORT INFORMATION
  Report Type: Spontaneous
  Country: US (occurrence: US)
  Receive Date: 20130930
  Receipt Date: 20130930
  Transmission Date: 20140515
  Serious: Yes (Other)
  Sender: FDA-Public Use
  Company Number: US-AMGEN-USASP2012073923

PATIENT
  Age: 55 Year
  Sex: Male
  Weight: 79.37 kg

DRUGS (8)
  1. ENBREL [Suspect]
     Indication: RHEUMATOID ARTHRITIS
     Dosage: 50 MG, QWK
     Route: 058
     Dates: start: 20060101
  2. CYMBALTA [Concomitant]
     Dosage: 30 MG, UNK
  3. MIRTAZAPINE [Concomitant]
     Dosage: 45 MG, UNK
  4. SULFAMETHOXAZOLE AND TRIMETHOPRIM [Concomitant]
     Dosage: 800-160
  5. OMEPRAZOLE [Concomitant]
     Dosage: 40 MG, UNK
  6. ASPIRIN [Concomitant]
     Dosage: 81 MG, UNK
  7. ATORVASTATIN [Concomitant]
     Dosage: 40 MG, UNK
  8. LOSARTAN + HIDROCLOROTIAZIDA [Concomitant]
     Dosage: 100-12.5

REACTIONS (3)
  - Staphylococcal infection [Not Recovered/Not Resolved]
  - Subcutaneous abscess [Unknown]
  - Furuncle [Recovered/Resolved]
